FAERS Safety Report 17100269 (Version 1)
Quarter: 2019Q4

REPORT INFORMATION
  Report Type: Spontaneous
  Country: ES (occurrence: ES)
  Receive Date: 20191202
  Receipt Date: 20191202
  Transmission Date: 20200122
  Serious: Yes (Other)
  Sender: FDA-Public Use
  Company Number: ES-MYLANLABS-2019M1115688

PATIENT
  Age: 5 Year
  Sex: Male

DRUGS (5)
  1. PARACETAMOL [Concomitant]
     Active Substance: ACETAMINOPHEN
     Dosage: 0.15 MG/KG
  2. METHYLPREDNISOLONE. [Suspect]
     Active Substance: METHYLPREDNISOLONE
     Indication: URTICARIA
     Dosage: 10 MILLIGRAM (1 MG/KG)
  3. ELOSULFASE ALFA [Concomitant]
     Active Substance: ELOSULFASE ALFA
     Dosage: 0.2 ML/MIN ADMINISTERED IN AN 8 HOUR LONG INFUSION
  4. DEXCHLORPHENIRAMINE MALEATE. [Suspect]
     Active Substance: DEXCHLORPHENIRAMINE MALEATE
     Indication: URTICARIA
     Dosage: 0.15 MG/KG
  5. DESLORATADINE. [Suspect]
     Active Substance: DESLORATADINE
     Indication: URTICARIA
     Dosage: 1.25 MILLIGRAM
     Route: 048

REACTIONS (1)
  - Drug ineffective [Unknown]
